FAERS Safety Report 11234509 (Version 3)
Quarter: 2015Q3

REPORT INFORMATION
  Report Type: Spontaneous
  Country: IT (occurrence: IT)
  Receive Date: 20150702
  Receipt Date: 20150922
  Transmission Date: 20151125
  Serious: Yes (Hospitalization, Other)
  Sender: FDA-Public Use
  Company Number: IT-TEVA-574296ACC

PATIENT
  Age: 13 Year
  Sex: Female
  Weight: 55 kg

DRUGS (3)
  1. RISPERDAL [Suspect]
     Active Substance: RISPERIDONE
     Indication: HALLUCINATION, VISUAL
     Dosage: 1 MILLIGRAM DAILY;
     Route: 048
     Dates: start: 20150520, end: 20150609
  2. RISPERDAL [Suspect]
     Active Substance: RISPERIDONE
     Dosage: 3 MILLIGRAM DAILY;
     Dates: start: 20150625
  3. DIAZEPAM. [Suspect]
     Active Substance: DIAZEPAM
     Indication: AGITATION
     Dosage: 20 GTT DAILY;
     Route: 048
     Dates: start: 20150520, end: 20150609

REACTIONS (6)
  - Seizure [Unknown]
  - Hallucination [Not Recovered/Not Resolved]
  - Fear of death [Not Recovered/Not Resolved]
  - Fatigue [Unknown]
  - Agitation [Not Recovered/Not Resolved]
  - Drug ineffective [Not Recovered/Not Resolved]

NARRATIVE: CASE EVENT DATE: 20150609
